FAERS Safety Report 17192154 (Version 1)
Quarter: 2019Q4

REPORT INFORMATION
  Report Type: Spontaneous
  Country: IE (occurrence: IE)
  Receive Date: 20191223
  Receipt Date: 20191223
  Transmission Date: 20200122
  Serious: Yes (Hospitalization)
  Sender: FDA-Public Use
  Company Number: IE-PFIZER INC-2019547478

PATIENT
  Age: 31 Year
  Sex: Male

DRUGS (4)
  1. VASOPRESSIN. [Suspect]
     Active Substance: VASOPRESSIN
     Indication: SPINAL SHOCK
  2. SALINE [SODIUM CHLORIDE] [Suspect]
     Active Substance: SODIUM CHLORIDE
     Indication: SPINAL SHOCK
     Dosage: UNK
  3. NOREPINEPHRINE BITARTRATE. [Suspect]
     Active Substance: NOREPINEPHRINE BITARTRATE
     Indication: SPINAL SHOCK
  4. SALINE [SODIUM CHLORIDE] [Suspect]
     Active Substance: SODIUM CHLORIDE
     Dosage: UNK

REACTIONS (4)
  - Polyuria [Unknown]
  - Dehydration [Unknown]
  - Hyponatraemia [Unknown]
  - Blood sodium increased [Unknown]
